FAERS Safety Report 23287908 (Version 1)
Quarter: 2023Q4

REPORT INFORMATION
  Report Type: Spontaneous
  Country: US (occurrence: None)
  Receive Date: 20231208
  Receipt Date: 20231208
  Transmission Date: 20240110
  Serious: Yes (Other)
  Sender: FDA-Public Use
  Company Number: None

PATIENT
  Age: 27 Year
  Sex: Male
  Weight: 69 kg

DRUGS (1)
  1. ISOBUTYL NITRITE [Suspect]
     Active Substance: ISOBUTYL NITRITE
     Dates: start: 20231208, end: 20231208

REACTIONS (9)
  - Dizziness [None]
  - Feeling hot [None]
  - Fatigue [None]
  - Mobility decreased [None]
  - Nasal discomfort [None]
  - Throat irritation [None]
  - Dysphagia [None]
  - Dyspnoea [None]
  - Incorrect route of product administration [None]

NARRATIVE: CASE EVENT DATE: 20231208
